FAERS Safety Report 5210641-X (Version None)
Quarter: 2006Q4

REPORT INFORMATION
  Report Type: 
  Country: None (occurrence: None)
  Receive Date: 20061106
  Receipt Date: 20060829
  Transmission Date: 20070319
  Serious: No
  Sender: FDA-Public Use
  Company Number: VNL_0192_2006

PATIENT
  Age: 58 Year
  Sex: Male
  Weight: 99.7913 kg

DRUGS (6)
  1. APOKYN [Suspect]
     Indication: PARKINSON'S DISEASE
     Dosage: 0.5 ML QDAY SC
     Route: 058
     Dates: start: 20060101, end: 20060101
  2. APOKYN [Suspect]
     Indication: PARKINSON'S DISEASE
     Dosage: 0.6 ML QDAY SC
     Route: 058
     Dates: start: 20060101
  3. APOKYN [Suspect]
     Indication: PARKINSON'S DISEASE
     Dosage: 0.2 ML QDAY SC
     Route: 058
     Dates: start: 20060601, end: 20060101
  4. STALEVO 100 [Concomitant]
  5. REQUIP [Concomitant]
  6. AZIRIRIT [Concomitant]

REACTIONS (1)
  - FATIGUE [None]
